FAERS Safety Report 9849463 (Version 1)
Quarter: 2014Q1

REPORT INFORMATION
  Report Type: Spontaneous
  Country: US (occurrence: None)
  Receive Date: 20140127
  Receipt Date: 20140127
  Transmission Date: 20141002
  Serious: Yes (Hospitalization)
  Sender: FDA-Public Use
  Company Number: None

PATIENT
  Age: 55 Year
  Sex: Female
  Weight: 89.8 kg

DRUGS (2)
  1. DYE EVANS BLUE [Suspect]
     Indication: CARDIOVASCULAR DISORDER
     Route: 042
     Dates: start: 20140123, end: 20140123
  2. DYE EVANS BLUE [Suspect]
     Indication: SURGERY
     Route: 042
     Dates: start: 20140123, end: 20140123

REACTIONS (3)
  - Rash [None]
  - Urticaria [None]
  - Pruritus [None]
